FAERS Safety Report 8020104-4 (Version None)
Quarter: 2012Q1

REPORT INFORMATION
  Report Type: 
  Country: None (occurrence: None)
  Receive Date: 20120103
  Receipt Date: 20111220
  Transmission Date: 20120608
  Serious: Yes (Life-Threatening)
  Sender: FDA-Public Use
  Company Number: ES-CELGENEUS-144-21880-11122449

PATIENT
  Age: 76 Year
  Sex: Male

DRUGS (2)
  1. REVLIMID [Suspect]
     Dosage: 25 MILLIGRAM
     Route: 048
     Dates: start: 20100416, end: 20100920
  2. DEXAMETHASONE [Concomitant]
     Dosage: 40 MILLIGRAM
     Route: 065

REACTIONS (1)
  - DISEASE PROGRESSION [None]
